FAERS Safety Report 12274310 (Version 1)
Quarter: 2016Q2

REPORT INFORMATION
  Report Type: Spontaneous
  Country: US (occurrence: US)
  Receive Date: 20160415
  Receipt Date: 20160415
  Transmission Date: 20160815
  Serious: No
  Sender: FDA-Public Use
  Company Number: US-ALLERGAN-1510799US

PATIENT
  Age: 43 Year
  Sex: Female
  Weight: 64.4 kg

DRUGS (1)
  1. LATISSE [Suspect]
     Active Substance: BIMATOPROST
     Indication: GROWTH OF EYELASHES
     Dosage: UPPER EYELASHES (TOP); LINE OF EYELASHES
     Route: 047
     Dates: end: 201505

REACTIONS (2)
  - Hypersensitivity [Recovering/Resolving]
  - Skin infection [Recovering/Resolving]

NARRATIVE: CASE EVENT DATE: 201505
